FAERS Safety Report 8447722-3 (Version None)
Quarter: 2012Q2

REPORT INFORMATION
  Report Type: 
  Country: None (occurrence: None)
  Receive Date: 20120619
  Receipt Date: 20120611
  Transmission Date: 20120825
  Serious: Yes (Hospitalization)
  Sender: FDA-Public Use
  Company Number: US-UCBSA-059492

PATIENT
  Sex: Female

DRUGS (2)
  1. CIMZIA [Suspect]
     Indication: CROHN'S DISEASE
     Dates: start: 20090101, end: 20120101
  2. DEMEROL [Suspect]
     Indication: PAIN
     Dosage: UNKNOWN DOSE

REACTIONS (4)
  - URINARY TRACT INFECTION [None]
  - HUMERUS FRACTURE [None]
  - INTESTINAL OBSTRUCTION [None]
  - FALL [None]
